FAERS Safety Report 8294804-5 (Version None)
Quarter: 2012Q2

REPORT INFORMATION
  Report Type: 
  Country: None (occurrence: None)
  Receive Date: 20120418
  Receipt Date: 20120418
  Transmission Date: 20120825
  Serious: Yes (Hospitalization)
  Sender: FDA-Public Use
  Company Number: PHHY2012FR030122

PATIENT
  Age: 52 Year
  Sex: Male

DRUGS (6)
  1. ANAFRANIL [Suspect]
     Indication: DEPRESSION
     Dosage: 0.25 MG, TID
     Route: 048
     Dates: start: 20120101, end: 20120121
  2. ESCITALOPRAM [Suspect]
     Indication: DEPRESSION
     Dosage: 20 MG, DAILY
     Route: 048
     Dates: start: 20111001, end: 20120101
  3. ALPRAZOLAM [Suspect]
     Indication: MENTAL DISORDER
     Dosage: 0.25 MG, TID
     Route: 048
     Dates: end: 20120121
  4. RASILEZ HCT [Suspect]
     Indication: HYPERTENSION
     Dosage: 1 DF, DAILY
     Route: 048
     Dates: end: 20120121
  5. ZYPREXA [Suspect]
     Indication: DEPRESSION
     Dosage: 5 MG, DAILY
     Route: 048
     Dates: start: 20111123, end: 20120105
  6. PRAZEPAM [Concomitant]

REACTIONS (11)
  - HEPATIC FAILURE [None]
  - JAUNDICE [None]
  - ALCOHOLIC LIVER DISEASE [None]
  - LIVER INJURY [None]
  - HEPATOSPLENOMEGALY [None]
  - CONDITION AGGRAVATED [None]
  - HEPATIC CIRRHOSIS [None]
  - CYTOLYTIC HEPATITIS [None]
  - ASCITES [None]
  - PROTHROMBIN LEVEL DECREASED [None]
  - BLOOD ALBUMIN DECREASED [None]
